FAERS Safety Report 7716337-4 (Version None)
Quarter: 2011Q3

REPORT INFORMATION
  Report Type: 
  Country: None (occurrence: None)
  Receive Date: 20110829
  Receipt Date: 20110818
  Transmission Date: 20111222
  Serious: Yes (Hospitalization, Disabling)
  Sender: FDA-Public Use
  Company Number: PHHY2011DE64819

PATIENT
  Sex: Male
  Weight: 85 kg

DRUGS (2)
  1. GILENYA [Suspect]
     Indication: MULTIPLE SCLEROSIS
     Dosage: 0.5 MG PER DAY
     Route: 048
     Dates: start: 20101101
  2. METHYLPREDNISOLONE [Suspect]
     Dosage: UNK
     Dates: start: 20090101

REACTIONS (1)
  - OSTEONECROSIS [None]
